FAERS Safety Report 8445858-4 (Version None)
Quarter: 2012Q2

REPORT INFORMATION
  Report Type: 
  Country: None (occurrence: None)
  Receive Date: 20120323
  Receipt Date: 20110519
  Transmission Date: 20120825
  Serious: Yes (Hospitalization)
  Sender: FDA-Public Use
  Company Number: 163-21880-11052619

PATIENT
  Age: 68 Year
  Sex: Male

DRUGS (2)
  1. REVLIMID [Suspect]
     Indication: MULTIPLE MYELOMA
     Dosage: 10 MG, 1 IN 1 D, PO, 15 MG, ONCE DAILY ON DAYS 1-20 EVERY 28 DAYS, PO
     Route: 048
     Dates: start: 20110301, end: 20110501
  2. REVLIMID [Suspect]
     Indication: MULTIPLE MYELOMA
     Dosage: 10 MG, 1 IN 1 D, PO, 15 MG, ONCE DAILY ON DAYS 1-20 EVERY 28 DAYS, PO
     Route: 048
     Dates: start: 20101201

REACTIONS (1)
  - PNEUMONIA [None]
